FAERS Safety Report 8270466 (Version 2)
Quarter: 2012Q4

REPORT INFORMATION
  Report Type: Spontaneous
  Country: JP (occurrence: None)
  Receive Date: 20111122
  Receipt Date: 20120529
  Transmission Date: 20130627
  Serious: Yes (Other)
  Sender: FDA-Public Use
  Company Number: JP-2011-11510

PATIENT
  Age: 99 Year
  Sex: Female
  Weight: 31 kg

DRUGS (9)
  1. SAMSCA [Suspect]
     Indication: CARDIAC FAILURE ACUTE
     Dosage: 15 MG MILLIGRAM(S), QD, ORAL
     Route: 048
     Dates: start: 20110830, end: 20110901
  2. PLAVIX [Concomitant]
  3. ASPARA POTASSIUM (POTASSIUM ASPARTATE) [Concomitant]
  4. VERAPAMIL HYDROCHLORIDE [Concomitant]
  5. LASIX [Concomitant]
  6. DIURETICS (DIURETICS) INJECTION [Concomitant]
  7. GASCOOL (POTASSIUM CANRENOATE) INJECTION [Concomitant]
  8. BLOOD SUBSTITUTES (BLOOD SUBSTITUTES) INJECTION [Concomitant]
  9. BLOOD SUBSTITUTES (BLOOD SUBSTITUTES) INJECTION [Concomitant]

REACTIONS (3)
  - Blood urea increased [None]
  - Hypernatraemia [None]
  - Blood potassium decreased [None]
